FAERS Safety Report 15801901 (Version 1)
Quarter: 2019Q1

REPORT INFORMATION
  Report Type: Spontaneous
  Country: US (occurrence: US)
  Receive Date: 20190109
  Receipt Date: 20190109
  Transmission Date: 20190417
  Serious: Yes (Other)
  Sender: FDA-Public Use
  Company Number: US-TORRENT-00007405

PATIENT

DRUGS (1)
  1. LOSARTAN. [Suspect]
     Active Substance: LOSARTAN
     Indication: HYPERTENSION
     Dosage: 100 MG, LOT NUMBER: BO31C016 AND 4DK3C005
     Route: 048
     Dates: start: 2018

REACTIONS (3)
  - Malaise [Unknown]
  - Headache [Unknown]
  - Surgery [Unknown]

NARRATIVE: CASE EVENT DATE: 2018
